FAERS Safety Report 24637159 (Version 3)
Quarter: 2025Q3

REPORT INFORMATION
  Report Type: Report from Study
  Country: CN (occurrence: CN)
  Receive Date: 20241119
  Receipt Date: 20250802
  Transmission Date: 20251021
  Serious: Yes (Other)
  Sender: ALEXION PHARMACEUTICALS
  Company Number: CN-ASTRAZENECA-202411GLO008266CN

PATIENT
  Age: 77 Year
  Sex: Male

DRUGS (12)
  1. OLAPARIB [Suspect]
     Active Substance: OLAPARIB
     Indication: Female reproductive neoplasm
     Dates: start: 20240619, end: 20240810
  2. OLAPARIB [Suspect]
     Active Substance: OLAPARIB
     Indication: Ovarian cancer
     Dates: start: 20240811, end: 20240917
  3. Zoledronic acid ranbaxy [Concomitant]
     Indication: Prophylaxis
  4. DEXAMETHASONE [Concomitant]
     Active Substance: DEXAMETHASONE
     Indication: Chemotherapy side effect prophylaxis
  5. TEPRENONE [Concomitant]
     Active Substance: TEPRENONE
     Indication: Prophylaxis
  6. Rivastig [Concomitant]
     Indication: Dementia Alzheimer^s type
  7. TANDOSPIRONE CITRATE [Concomitant]
     Active Substance: TANDOSPIRONE CITRATE
     Indication: Anxiety
  8. CLOPIDOGREL BISULFATE [Concomitant]
     Active Substance: CLOPIDOGREL BISULFATE
     Indication: Prophylaxis
  9. BATILOL [Concomitant]
     Active Substance: BATILOL
     Indication: Prophylaxis
  10. ROXADUSTAT [Concomitant]
     Active Substance: ROXADUSTAT
  11. BERAPROST SODIUM [Concomitant]
     Active Substance: BERAPROST SODIUM
     Indication: Chronic kidney disease
  12. Adco-sodium bicarbonate [Concomitant]
     Indication: Chronic kidney disease

REACTIONS (1)
  - Myelosuppression [Not Recovered/Not Resolved]

NARRATIVE: CASE EVENT DATE: 20241030
